FAERS Safety Report 9699935 (Version 2)
Quarter: 2013Q4

REPORT INFORMATION
  Report Type: Report from Study
  Country: US (occurrence: US)
  Receive Date: 20131121
  Receipt Date: 20131121
  Transmission Date: 20140711
  Serious: Yes (Hospitalization)
  Sender: FDA-Public Use
  Company Number: US-ROCHE-1301334

PATIENT
  Age: 77 Year
  Sex: Female
  Weight: 63.56 kg

DRUGS (5)
  1. RITUXAN [Suspect]
     Indication: NON-HODGKIN^S LYMPHOMA
     Route: 042
     Dates: start: 20131030, end: 20131030
  2. MORPHINE [Concomitant]
     Route: 042
     Dates: start: 20131030, end: 20131030
  3. ATENOLOL [Concomitant]
     Route: 048
  4. AMLODIPINE [Concomitant]
     Route: 048
  5. LEVOTHYROXINE [Concomitant]
     Route: 048

REACTIONS (3)
  - Back pain [Recovered/Resolved]
  - Shock [Recovered/Resolved]
  - Muscle spasms [Recovered/Resolved]
